FAERS Safety Report 15647215 (Version 2)
Quarter: 2018Q4

REPORT INFORMATION
  Report Type: Spontaneous
  Country: SE (occurrence: SE)
  Receive Date: 20181122
  Receipt Date: 20181129
  Transmission Date: 20190205
  Serious: Yes (Other)
  Sender: FDA-Public Use
  Company Number: SE-TEVA-2018-SE-977906

PATIENT
  Age: 11 Month
  Sex: Male

DRUGS (1)
  1. AIROMIR AUTOHALER [Suspect]
     Active Substance: ALBUTEROL SULFATE
     Dosage: 1 DOSE WHEN NEEDED. MAXIMUM 4 INHALATIONS PER DAY
     Route: 055
     Dates: start: 20180208, end: 20180209

REACTIONS (4)
  - Respiratory distress [Recovered/Resolved]
  - Product administered to patient of inappropriate age [Unknown]
  - Drug ineffective [Unknown]
  - Product prescribing error [Unknown]

NARRATIVE: CASE EVENT DATE: 20180208
